FAERS Safety Report 16769790 (Version 1)
Quarter: 2019Q3

REPORT INFORMATION
  Report Type: Spontaneous
  Country: US (occurrence: US)
  Receive Date: 20190904
  Receipt Date: 20190904
  Transmission Date: 20191005
  Serious: Yes (Other)
  Sender: FDA-Public Use
  Company Number: US-ALEXION PHARMACEUTICALS INC.-A201913488

PATIENT
  Age: 20 Year
  Sex: Female
  Weight: 164 kg

DRUGS (2)
  1. SOLIRIS [Suspect]
     Active Substance: ECULIZUMAB
     Dosage: 900 MG, QW
     Route: 065
  2. SOLIRIS [Suspect]
     Active Substance: ECULIZUMAB
     Indication: ATYPICAL HAEMOLYTIC URAEMIC SYNDROME
     Dosage: UNK
     Route: 065

REACTIONS (8)
  - Blood creatinine increased [Unknown]
  - Therapeutic product effect incomplete [Unknown]
  - Renal impairment [Unknown]
  - Platelet count decreased [Recovering/Resolving]
  - Blood lactate dehydrogenase increased [Unknown]
  - Troponin increased [Recovering/Resolving]
  - Haemoglobin decreased [Recovering/Resolving]
  - Weight increased [Unknown]
